FAERS Safety Report 5091542-7 (Version None)
Quarter: 2006Q3

REPORT INFORMATION
  Report Type: 
  Country: None (occurrence: None)
  Receive Date: 20060829
  Receipt Date: 20060804
  Transmission Date: 20061208
  Serious: Yes (Other)
  Sender: FDA-Public Use
  Company Number: CH-BRISTOL-MYERS SQUIBB COMPANY-13466081

PATIENT
  Age: 16 Year
  Sex: Female

DRUGS (3)
  1. APROVEL [Suspect]
     Indication: NEPHROPATHY
     Route: 048
     Dates: start: 20050101, end: 20051101
  2. VENTOLIN [Concomitant]
  3. SINGULAIR [Concomitant]

REACTIONS (1)
  - INTESTINAL VILLI ATROPHY [None]
